FAERS Safety Report 7948673-0 (Version None)
Quarter: 2011Q4

REPORT INFORMATION
  Report Type: 
  Country: None (occurrence: None)
  Receive Date: 20111130
  Receipt Date: 20111130
  Transmission Date: 20120403
  Serious: Yes (Death, Life-Threatening)
  Sender: FDA-Public Use
  Company Number: None

PATIENT
  Age: 89 Year
  Sex: Female
  Weight: 54 kg

DRUGS (1)
  1. DABIGATRAN [Suspect]

REACTIONS (3)
  - COAGULOPATHY [None]
  - PHARYNGEAL HAEMORRHAGE [None]
  - RECTAL HAEMORRHAGE [None]
